FAERS Safety Report 4436292-2 (Version None)
Quarter: 2004Q3

REPORT INFORMATION
  Report Type: 
  Country: None (occurrence: None)
  Receive Date: 20040830
  Receipt Date: 20040709
  Transmission Date: 20050211
  Serious: No
  Sender: FDA-Public Use
  Company Number: US-BRISTOL-MYERS SQUIBB COMPANY-12637526

PATIENT
  Age: 6 Decade
  Sex: Male

DRUGS (4)
  1. ERBITUX [Suspect]
     Indication: BLADDER CANCER
     Route: 042
  2. PAXIL [Concomitant]
  3. TAXOTERE [Concomitant]
  4. AVASTIN [Concomitant]

REACTIONS (3)
  - DERMATITIS ACNEIFORM [None]
  - OESOPHAGITIS [None]
  - STOMATITIS [None]
